FAERS Safety Report 7880193-4 (Version None)
Quarter: 2011Q4

REPORT INFORMATION
  Report Type: 
  Country: None (occurrence: None)
  Receive Date: 20111101
  Receipt Date: 20111027
  Transmission Date: 20120403
  Serious: No
  Sender: FDA-Public Use
  Company Number: US-PFIZER INC-2011263765

PATIENT
  Sex: Female
  Weight: 63.492 kg

DRUGS (4)
  1. IBUPROFEN (ADVIL) [Suspect]
     Indication: SCIATICA
     Dosage: UNK
     Route: 048
     Dates: start: 20110101, end: 20111027
  2. TIMOLOL [Concomitant]
     Indication: MACULAR DEGENERATION
     Dosage: UNK
  3. POVIDONE-IODINE [Concomitant]
     Indication: MACULAR DEGENERATION
     Dosage: UNK
  4. ASPIRIN [Concomitant]
     Indication: ARTHRALGIA
     Dosage: UNK
     Dates: end: 20110101

REACTIONS (1)
  - DRUG INEFFECTIVE [None]
